FAERS Safety Report 11380928 (Version 2)
Quarter: 2015Q4

REPORT INFORMATION
  Report Type: Spontaneous
  Country: US (occurrence: US)
  Receive Date: 20150814
  Receipt Date: 20151022
  Transmission Date: 20160304
  Serious: No
  Sender: FDA-Public Use
  Company Number: US-JNJFOC-20150723146

PATIENT
  Age: 53 Year
  Sex: Male
  Weight: 83.92 kg

DRUGS (4)
  1. LIALDA [Concomitant]
     Active Substance: MESALAMINE
     Indication: CROHN^S DISEASE
     Dosage: STRENGTH: 1.2 GM
     Route: 048
     Dates: start: 2014
  2. SIMPONI [Suspect]
     Active Substance: GOLIMUMAB
     Indication: CROHN^S DISEASE
     Dosage: STRENGTH: 100 MG
     Route: 058
     Dates: start: 2014
  3. SIMPONI [Suspect]
     Active Substance: GOLIMUMAB
     Indication: COLITIS ULCERATIVE
     Dosage: STRENGTH: 100 MG
     Route: 058
     Dates: start: 2014
  4. LIALDA [Concomitant]
     Active Substance: MESALAMINE
     Indication: COLITIS ULCERATIVE
     Dosage: STRENGTH: 1.2 GM
     Route: 048
     Dates: start: 2014

REACTIONS (3)
  - Drug dose omission [Not Recovered/Not Resolved]
  - Device malfunction [Unknown]
  - Product tampering [Unknown]

NARRATIVE: CASE EVENT DATE: 20150730
